FAERS Safety Report 7249206-7 (Version None)
Quarter: 2011Q1

REPORT INFORMATION
  Report Type: 
  Country: None (occurrence: None)
  Receive Date: 20110128
  Receipt Date: 20101203
  Transmission Date: 20110831
  Serious: Yes (Hospitalization, Other)
  Sender: FDA-Public Use
  Company Number: US-BAYER-2010-006895

PATIENT
  Sex: Female
  Weight: 66 kg

DRUGS (12)
  1. ZOFRAN [Concomitant]
     Indication: ABDOMINAL PAIN
     Dosage: UNK
     Dates: start: 20080901
  2. YASMIN [Suspect]
     Indication: OVARIAN CYST
     Dosage: UNK
     Route: 048
     Dates: start: 20080901, end: 20081001
  3. PEPCID [Concomitant]
     Indication: BACK PAIN
  4. TORADOL [Concomitant]
     Indication: ABDOMINAL PAIN
     Dosage: UNK
     Dates: start: 20080901
  5. DILAUDID [Concomitant]
     Indication: ABDOMINAL PAIN
     Dosage: UNK
     Dates: start: 20080901
  6. ZOFRAN [Concomitant]
     Indication: BACK PAIN
  7. VICODIN [Concomitant]
     Indication: PROPHYLAXIS URINARY TRACT INFECTION
     Dosage: UNK
     Dates: start: 20080901
  8. CIPRO [Concomitant]
     Indication: PROPHYLAXIS URINARY TRACT INFECTION
     Dosage: UNK
     Dates: start: 20080901
  9. TORADOL [Concomitant]
     Indication: BACK PAIN
  10. PEPCID [Concomitant]
     Indication: ABDOMINAL PAIN
     Dosage: UNK
     Dates: start: 20080901
  11. YASMIN [Suspect]
     Indication: MENSTRUAL CYCLE MANAGEMENT
  12. DILAUDID [Concomitant]
     Indication: BACK PAIN

REACTIONS (12)
  - EMOTIONAL DISTRESS [None]
  - NERVOUSNESS [None]
  - GASTROINTESTINAL DISORDER [None]
  - BACK PAIN [None]
  - NAUSEA [None]
  - CHOLECYSTITIS CHRONIC [None]
  - APPENDICITIS [None]
  - FEAR OF DEATH [None]
  - HAEMORRHAGIC CYST [None]
  - BILIARY DYSKINESIA [None]
  - ABDOMINAL PAIN [None]
  - DEPRESSION [None]
